FAERS Safety Report 8548792-4 (Version None)
Quarter: 2012Q3

REPORT INFORMATION
  Report Type: 
  Country: None (occurrence: None)
  Receive Date: 20120730
  Receipt Date: 20120718
  Transmission Date: 20120928
  Serious: Yes (Hospitalization)
  Sender: FDA-Public Use
  Company Number: FR-BRISTOL-MYERS SQUIBB COMPANY-16783938

PATIENT
  Age: 75 Year
  Sex: Male

DRUGS (4)
  1. DULCOLAX [Concomitant]
  2. COUMADIN [Suspect]
     Dosage: 1DF= 1.5 TAB
     Route: 048
     Dates: end: 20120703
  3. SOTALOL HYDROCHLORIDE [Concomitant]
  4. METFORMIN HYDROCHLORIDE [Concomitant]

REACTIONS (5)
  - CEREBRAL HAEMORRHAGE [None]
  - MUSCLE HAEMORRHAGE [None]
  - INTERNATIONAL NORMALISED RATIO INCREASED [None]
  - FALL [None]
  - CONSTIPATION [None]
